FAERS Safety Report 6884800-4 (Version None)
Quarter: 2010Q3

REPORT INFORMATION
  Report Type: 
  Country: None (occurrence: None)
  Receive Date: 20100729
  Receipt Date: 20070912
  Transmission Date: 20110219
  Serious: No
  Sender: FDA-Public Use
  Company Number: US-PFIZER INC-2007076405

PATIENT
  Sex: Female
  Weight: 81.8 kg

DRUGS (9)
  1. CELEBREX [Suspect]
     Indication: ARTHROPATHY
     Dates: start: 20070907
  2. METFORMIN HCL [Concomitant]
  3. VYTORIN [Concomitant]
  4. POTASSIUM CHLORIDE [Concomitant]
  5. AMITRIPTYLINE HYDROCHLORIDE [Concomitant]
  6. FUROSEMIDE [Concomitant]
  7. ATENOLOL [Concomitant]
  8. ISOSORBIDE [Concomitant]
  9. BENAZEPRIL HYDROCHLORIDE [Concomitant]

REACTIONS (2)
  - PRURITUS [None]
  - RASH [None]
